FAERS Safety Report 6327415-9 (Version None)
Quarter: 2009Q3

REPORT INFORMATION
  Report Type: 
  Country: None (occurrence: None)
  Receive Date: 20090825
  Receipt Date: 20090813
  Transmission Date: 20100115
  Serious: Yes (Hospitalization)
  Sender: FDA-Public Use
  Company Number: DE-PFIZER INC-2009255004

PATIENT
  Age: 77 Year

DRUGS (12)
  1. SUNITINIB MALATE [Suspect]
     Indication: METASTATIC RENAL CELL CARCINOMA
     Dosage: UNK
     Route: 048
     Dates: start: 20090722
  2. OLMESARTAN MEDOXOMIL [Concomitant]
     Dosage: 20 MG/D
     Dates: start: 20090301
  3. CARMEN [Concomitant]
     Dosage: 20 MG/D
     Dates: start: 20090301
  4. FUROSEMID [Concomitant]
     Dosage: 80 MG/D
     Dates: start: 20090301
  5. TRIAMTERENE AND HYDROCHLOROTHIAZIDE [Concomitant]
     Dosage: 0.5 TABLETS PER DAY
  6. ALLOPURINOL [Concomitant]
     Dosage: 150 MG/D
  7. EZETIMIBE/SIMVASTATIN [Concomitant]
     Dosage: 1 TABLET PER DAY
  8. SOTAHEXAL [Concomitant]
     Dosage: 120 MG/D
     Dates: start: 20040101
  9. NOVODIGAL [Concomitant]
     Dosage: 0.2 MG
     Dates: start: 20040101
  10. MARCUMAR [Concomitant]
     Dosage: UNK
     Dates: start: 20030101
  11. NITROLINGUAL [Concomitant]
     Dosage: UNK
     Dates: start: 20030101
  12. KALINOR [Concomitant]
     Dosage: 3 G/D
     Dates: start: 20090728

REACTIONS (1)
  - ARRHYTHMIA [None]
